FAERS Safety Report 15341668 (Version 1)
Quarter: 2018Q3

REPORT INFORMATION
  Report Type: Spontaneous
  Country: FR (occurrence: FR)
  Receive Date: 20180901
  Receipt Date: 20180901
  Transmission Date: 20181010
  Serious: Yes (Death)
  Sender: FDA-Public Use
  Company Number: FR-SUN PHARMACEUTICAL INDUSTRIES LTD-2018RR-183122

PATIENT

DRUGS (1)
  1. IBUPROFEN. [Suspect]
     Active Substance: IBUPROFEN
     Indication: INFECTION
     Dosage: ()
     Route: 048
     Dates: start: 20180317, end: 20180319

REACTIONS (1)
  - Infection [Fatal]

NARRATIVE: CASE EVENT DATE: 201803
